FAERS Safety Report 9025932 (Version 1)
Quarter: 2013Q1

REPORT INFORMATION
  Report Type: Spontaneous
  Country: ES (occurrence: ES)
  Receive Date: 20130122
  Receipt Date: 20130122
  Transmission Date: 20140127
  Serious: Yes (Other)
  Sender: FDA-Public Use
  Company Number: ES-ROCHE-1181372

PATIENT
  Age: 16 Year
  Sex: Female

DRUGS (1)
  1. MABTHERA [Suspect]
     Indication: JUVENILE IDIOPATHIC ARTHRITIS
     Dosage: ONLY ONE CYCLE
     Route: 065

REACTIONS (2)
  - Hypoglobulinaemia [Not Recovered/Not Resolved]
  - Respiratory tract infection [Unknown]
